FAERS Safety Report 13351336 (Version 1)
Quarter: 2017Q1

REPORT INFORMATION
  Report Type: Spontaneous
  Country: US (occurrence: US)
  Receive Date: 20170320
  Receipt Date: 20170320
  Transmission Date: 20170429
  Serious: Yes (Other)
  Sender: FDA-Public Use
  Company Number: US-TEVA-750072USA

PATIENT
  Age: 48 Year
  Sex: Female

DRUGS (11)
  1. COPAXONE [Suspect]
     Active Substance: GLATIRAMER ACETATE
     Indication: MULTIPLE SCLEROSIS
     Route: 058
  2. NOVOLOG [Concomitant]
     Active Substance: INSULIN ASPART
  3. SYMBICORT [Concomitant]
     Active Substance: BUDESONIDE\FORMOTEROL FUMARATE DIHYDRATE
  4. BENADRYL [Concomitant]
     Active Substance: DIPHENHYDRAMINE HYDROCHLORIDE
  5. ADVIL [Concomitant]
     Active Substance: IBUPROFEN
  6. VENTOLIN [Concomitant]
     Active Substance: ALBUTEROL SULFATE
  7. VITAMIN D3 [Concomitant]
     Active Substance: CHOLECALCIFEROL
  8. MOMETASONE [Concomitant]
     Active Substance: MOMETASONE
  9. SUDAFED [Concomitant]
     Active Substance: PSEUDOEPHEDRINE HYDROCHLORIDE
  10. VITAMIN B12 [Concomitant]
     Active Substance: CYANOCOBALAMIN
  11. AZELASTINE [Concomitant]
     Active Substance: AZELASTINE

REACTIONS (1)
  - Hemiparesis [Unknown]

NARRATIVE: CASE EVENT DATE: 201702
